FAERS Safety Report 4679772-7 (Version None)
Quarter: 2005Q2

REPORT INFORMATION
  Report Type: 
  Country: None (occurrence: None)
  Receive Date: 20050531
  Receipt Date: 20050519
  Transmission Date: 20051028
  Serious: Yes (Hospitalization)
  Sender: FDA-Public Use
  Company Number: 2005078530

PATIENT
  Age: 45 Year
  Sex: Male

DRUGS (3)
  1. ALPRAZOLAM [Suspect]
     Indication: PANIC REACTION
     Dosage: 1.5 MG (0.5 MG, 3 IN 1 D), ORAL
     Route: 048
     Dates: start: 19900101
  2. FLUOXETINE [Concomitant]
  3. ANAFRANIL [Concomitant]

REACTIONS (8)
  - ANXIETY [None]
  - BALANCE DISORDER [None]
  - COLONIC POLYP [None]
  - CONSTIPATION [None]
  - DISTURBANCE IN ATTENTION [None]
  - DRY MOUTH [None]
  - GALLBLADDER POLYP [None]
  - SALIVA DISCOLOURATION [None]
